FAERS Safety Report 16106975 (Version 1)
Quarter: 2019Q1

REPORT INFORMATION
  Report Type: Spontaneous
  Country: CH (occurrence: CH)
  Receive Date: 20190322
  Receipt Date: 20190322
  Transmission Date: 20190418
  Serious: Yes (Congenital Anomaly, Other)
  Sender: FDA-Public Use
  Company Number: CH-GLAXOSMITHKLINE-CH2019050652

PATIENT

DRUGS (3)
  1. VOLTAREN [Suspect]
     Active Substance: DICLOFENAC SODIUM
     Indication: PRODUCT USED FOR UNKNOWN INDICATION
     Dosage: 75 MG, QD
     Route: 015
  2. SIRDALUD [Suspect]
     Active Substance: TIZANIDINE
     Dosage: 2 MG, QD
     Route: 015
     Dates: start: 20180325, end: 20180326
  3. SIRDALUD [Suspect]
     Active Substance: TIZANIDINE
     Indication: PRODUCT USED FOR UNKNOWN INDICATION
     Dosage: 4 MG, ONCE/SINGLE
     Route: 015
     Dates: start: 20180324, end: 20180324

REACTIONS (1)
  - Trisomy 21 [Recovered/Resolved]
